FAERS Safety Report 7176867-3 (Version None)
Quarter: 2010Q4

REPORT INFORMATION
  Report Type: 
  Country: None (occurrence: None)
  Receive Date: 20101216
  Receipt Date: 20101216
  Transmission Date: 20110411
  Serious: Yes (Life-Threatening, Hospitalization)
  Sender: FDA-Public Use
  Company Number: None

PATIENT
  Age: 41 Year
  Sex: Female
  Weight: 133.8111 kg

DRUGS (2)
  1. SEASONIQUE [Suspect]
     Indication: MENOPAUSAL SYMPTOMS
     Dosage: ONCE DAILY PO
     Route: 048
     Dates: start: 20100401, end: 20101201
  2. SEASONIQUE [Suspect]
     Indication: MENORRHAGIA
     Dosage: ONCE DAILY PO
     Route: 048
     Dates: start: 20100401, end: 20101201

REACTIONS (1)
  - PULMONARY EMBOLISM [None]
